FAERS Safety Report 9928344 (Version 2)
Quarter: 2014Q2

REPORT INFORMATION
  Report Type: Report from Study
  Country: CO (occurrence: CO)
  Receive Date: 20140227
  Receipt Date: 20140620
  Transmission Date: 20141212
  Serious: Yes (Hospitalization, Other)
  Sender: FDA-Public Use
  Company Number: CO-ROCHE-1354786

PATIENT
  Age: 83 Year
  Sex: Female
  Weight: 59 kg

DRUGS (5)
  1. RANIBIZUMAB [Suspect]
     Indication: RETINAL DISORDER
     Route: 050
     Dates: start: 201308
  2. RANIBIZUMAB [Suspect]
     Route: 050
     Dates: start: 201311
  3. LOSARTAN [Concomitant]
  4. INSULIN [Concomitant]
  5. CARDIOASPIRIN [Concomitant]

REACTIONS (8)
  - General physical health deterioration [Unknown]
  - Blindness unilateral [Not Recovered/Not Resolved]
  - Eye swelling [Unknown]
  - Eye pain [Recovered/Resolved]
  - Blood glucose increased [Recovered/Resolved]
  - Hypertension [Recovered/Resolved]
  - Eye disorder [Unknown]
  - Visual acuity reduced [Unknown]
